FAERS Safety Report 5359598-1 (Version None)
Quarter: 2007Q2

REPORT INFORMATION
  Report Type: 
  Country: None (occurrence: None)
  Receive Date: 20070615
  Receipt Date: 20070612
  Transmission Date: 20071010
  Serious: Yes (Death)
  Sender: FDA-Public Use
  Company Number: BR-ALLERGAN-0706267US

PATIENT
  Age: 35 Year
  Sex: Male

DRUGS (3)
  1. LUMIGAN[TM] [Suspect]
     Indication: GLAUCOMA
     Dosage: UNK, UNK
     Route: 047
     Dates: start: 20070501
  2. RIVOTRIL [Concomitant]
     Indication: PANIC DISORDER
  3. LEXAPRO [Concomitant]
     Indication: PANIC DISORDER

REACTIONS (1)
  - DEATH [None]
